FAERS Safety Report 6963250-6 (Version None)
Quarter: 2010Q3

REPORT INFORMATION
  Report Type: 
  Country: None (occurrence: None)
  Receive Date: 20100902
  Receipt Date: 20100517
  Transmission Date: 20110219
  Serious: No
  Sender: FDA-Public Use
  Company Number: A0860850A

PATIENT
  Age: 48 Year
  Sex: Male

DRUGS (5)
  1. SELZENTRY [Suspect]
     Indication: HIV INFECTION
     Dosage: 300MG TWICE PER DAY
     Route: 048
     Dates: start: 20100303
  2. TRUVADA [Concomitant]
  3. ALLEGRA [Concomitant]
  4. TRICOR [Concomitant]
  5. TEMAZEPAM [Concomitant]

REACTIONS (1)
  - PAROSMIA [None]
